FAERS Safety Report 7013050-6 (Version None)
Quarter: 2010Q3

REPORT INFORMATION
  Report Type: 
  Country: None (occurrence: None)
  Receive Date: 20100924
  Receipt Date: 20100915
  Transmission Date: 20110219
  Serious: Yes (Hospitalization, Other)
  Sender: FDA-Public Use
  Company Number: US-SANOFI-AVENTIS-2010SA016121

PATIENT
  Age: 70 Year
  Sex: Male

DRUGS (7)
  1. PLAVIX [Suspect]
     Route: 048
     Dates: start: 20041001
  2. PLAVIX [Suspect]
     Route: 048
     Dates: start: 20041001
  3. PLAVIX [Suspect]
     Route: 048
     Dates: start: 20041001
  4. PLAVIX [Suspect]
     Route: 048
     Dates: start: 20041001
  5. DIGOXIN [Concomitant]
  6. NITROGLYCERIN ^SLOVAKOFARMA^ [Concomitant]
  7. CARVEDILOL [Concomitant]

REACTIONS (9)
  - BLEPHARAL PAPILLOMA [None]
  - BLOOD PRESSURE INCREASED [None]
  - CARDIAC FAILURE CONGESTIVE [None]
  - CONDITION AGGRAVATED [None]
  - ERYTHEMA [None]
  - FATIGUE [None]
  - HEADACHE [None]
  - HEART RATE INCREASED [None]
  - SKIN HAEMORRHAGE [None]
